FAERS Safety Report 5062013-9 (Version None)
Quarter: 2006Q3

REPORT INFORMATION
  Report Type: 
  Country: None (occurrence: None)
  Receive Date: 20060721
  Receipt Date: 20060721
  Transmission Date: 20061208
  Serious: Yes (Life-Threatening, Hospitalization)
  Sender: FDA-Public Use
  Company Number: None

PATIENT
  Age: 50 Year
  Sex: Male
  Weight: 71.6683 kg

DRUGS (2)
  1. SEROQUEL [Suspect]
     Dates: start: 20030301, end: 20030301
  2. SEROQUEL [Suspect]
     Dates: start: 20030301, end: 20030401

REACTIONS (1)
  - HYPOTENSION [None]
